FAERS Safety Report 22961443 (Version 2)
Quarter: 2023Q4

REPORT INFORMATION
  Report Type: Report from Study
  Country: US (occurrence: US)
  Receive Date: 20230920
  Receipt Date: 20231019
  Transmission Date: 20240109
  Serious: Yes (Hospitalization)
  Sender: FDA-Public Use
  Company Number: US-PFIZER INC-PV202300154348

PATIENT
  Age: 44 Month
  Sex: Male
  Weight: 26 kg

DRUGS (15)
  1. SIROLIMUS [Suspect]
     Active Substance: SIROLIMUS
     Indication: Immunosuppression
     Dosage: 0.86 MG, EVERY 4 HRS, FOR 3 DOSES
     Route: 048
     Dates: start: 20230619, end: 20230619
  2. SIROLIMUS [Suspect]
     Active Substance: SIROLIMUS
     Dosage: 0.22 MG, BID
     Route: 048
     Dates: start: 20230620, end: 20230714
  3. SIROLIMUS [Suspect]
     Active Substance: SIROLIMUS
     Dosage: 0.15 MG, BID
     Route: 048
     Dates: start: 20230714
  4. IBUPROFEN [Concomitant]
     Active Substance: IBUPROFEN
     Dosage: UNK
     Dates: start: 202010
  5. DIPHENHYDRAMINE [Concomitant]
     Active Substance: DIPHENHYDRAMINE
     Dosage: UNK
     Dates: start: 202010
  6. METHYLPREDNISOLONE [Concomitant]
     Active Substance: METHYLPREDNISOLONE
     Dosage: UNK
     Dates: start: 202010
  7. EPINEPHRINE [Concomitant]
     Active Substance: EPINEPHRINE
     Dosage: UNK
     Dates: start: 20211215
  8. MINERALS\VITAMINS [Concomitant]
     Active Substance: MINERALS\VITAMINS
     Dosage: UNK
     Dates: start: 202111
  9. TUKOL MULTI SYMPTOM COLD [Concomitant]
     Active Substance: DEXTROMETHORPHAN HYDROBROMIDE\GUAIFENESIN\PHENYLEPHRINE HYDROCHLORIDE
     Dosage: UNK
     Dates: start: 202111
  10. LANOLIN;MINERAL OIL;PETROLATUM [Concomitant]
     Dosage: UNK
     Dates: start: 20230519
  11. DESONIDE [Concomitant]
     Active Substance: DESONIDE
     Dosage: UNK
     Dates: start: 20230424
  12. MUPIROCIN [Concomitant]
     Active Substance: MUPIROCIN
     Dosage: UNK
     Dates: start: 20230424
  13. CETIRIZINE HCL [Concomitant]
     Active Substance: CETIRIZINE HYDROCHLORIDE
     Dosage: UNK
     Dates: start: 20230604
  14. BACTRIM [Concomitant]
     Active Substance: SULFAMETHOXAZOLE\TRIMETHOPRIM
     Dosage: UNK
     Dates: start: 20230619
  15. IDURSULFASE [Concomitant]
     Active Substance: IDURSULFASE
     Dosage: UNK
     Dates: start: 20200716

REACTIONS (1)
  - Infection [Recovered/Resolved]

NARRATIVE: CASE EVENT DATE: 20230802
